FAERS Safety Report 7788062-5 (Version None)
Quarter: 2011Q3

REPORT INFORMATION
  Report Type: 
  Country: None (occurrence: None)
  Receive Date: 20110930
  Receipt Date: 20110923
  Transmission Date: 20111222
  Serious: Yes (Life-Threatening, Hospitalization, Other)
  Sender: FDA-Public Use
  Company Number: US-ELI_LILLY_AND_COMPANY-US201109007589

PATIENT
  Age: 65 Year

DRUGS (6)
  1. HUMALOG [Suspect]
     Dosage: SLIDING SCALE
     Route: 065
  2. HUMALOG [Suspect]
     Dosage: SLIDING SCALE
     Route: 065
  3. GLUCOPHAGE [Concomitant]
  4. GLYBURIDE [Concomitant]
  5. HUMALOG [Suspect]
     Indication: TYPE 2 DIABETES MELLITUS
     Dosage: SLIDING SCALE
     Route: 065
  6. LANTUS [Concomitant]
     Dosage: UNK

REACTIONS (17)
  - MECHANICAL VENTILATION [None]
  - TOOTH FRACTURE [None]
  - WEIGHT INCREASED [None]
  - HEPATIC CIRRHOSIS [None]
  - ASTHENIA [None]
  - ARTHRITIS [None]
  - WOUND [None]
  - AMMONIA INCREASED [None]
  - LIMB INJURY [None]
  - DRUG HYPERSENSITIVITY [None]
  - DENTAL CARIES [None]
  - GASTRIC HAEMORRHAGE [None]
  - NEPHRECTOMY [None]
  - HEART RATE DECREASED [None]
  - FALL [None]
  - COAGULOPATHY [None]
  - CONFUSIONAL STATE [None]
